FAERS Safety Report 9364635 (Version 1)
Quarter: 2013Q2

REPORT INFORMATION
  Report Type: Spontaneous
  Country: TW (occurrence: TW)
  Receive Date: 20130624
  Receipt Date: 20130624
  Transmission Date: 20140414
  Serious: Yes (Hospitalization)
  Sender: FDA-Public Use
  Company Number: TW-MYLANLABS-2013S1013014

PATIENT
  Age: 30 Year
  Sex: Male

DRUGS (5)
  1. VENLAFAXINE [Suspect]
     Indication: SUICIDE ATTEMPT
     Route: 048
  2. DIAZEPAM [Suspect]
     Indication: SUICIDE ATTEMPT
     Route: 048
  3. MOCLOBEMIDE [Suspect]
     Indication: SUICIDE ATTEMPT
     Route: 048
  4. TRAZODONE [Suspect]
     Indication: SUICIDE ATTEMPT
     Route: 048
  5. ZOLPIDEM [Suspect]
     Indication: SUICIDE ATTEMPT
     Route: 048

REACTIONS (8)
  - Suicide attempt [Recovering/Resolving]
  - Overdose [Recovering/Resolving]
  - Serotonin syndrome [Recovering/Resolving]
  - Renal failure acute [Recovered/Resolved]
  - Rhabdomyolysis [Recovering/Resolving]
  - Metabolic acidosis [Recovering/Resolving]
  - Depressed level of consciousness [Recovered/Resolved]
  - Unresponsive to stimuli [Recovered/Resolved]
